FAERS Safety Report 16964311 (Version 1)
Quarter: 2019Q4

REPORT INFORMATION
  Report Type: Spontaneous
  Country: US (occurrence: US)
  Receive Date: 20190909
  Receipt Date: 20190909
  Transmission Date: 20200122
  Serious: Yes (Hospitalization)
  Sender: FDA-Public Use
  Company Number: None

PATIENT
  Age: 64 Year
  Sex: Female
  Weight: 30.39 kg

DRUGS (12)
  1. ROSUVASTATIN. [Concomitant]
     Active Substance: ROSUVASTATIN
  2. APIXABAN [Suspect]
     Active Substance: APIXABAN
     Indication: DEEP VEIN THROMBOSIS
     Dosage: ?          OTHER DOSE:2.5 OR 5.0 MG;?
     Route: 048
     Dates: start: 20181227
  3. LISINOPRIL. [Concomitant]
     Active Substance: LISINOPRIL
  4. LUPIPROSTONE [Concomitant]
  5. ALPRAZOLAM. [Concomitant]
     Active Substance: ALPRAZOLAM
  6. SERTRALINE [Concomitant]
     Active Substance: SERTRALINE HYDROCHLORIDE
  7. ASPIRIN. [Concomitant]
     Active Substance: ASPIRIN
  8. FLUTICASONE. [Concomitant]
     Active Substance: FLUTICASONE
  9. GABAPENTIN. [Concomitant]
     Active Substance: GABAPENTIN
  10. LANSOPRAZOLE. [Concomitant]
     Active Substance: LANSOPRAZOLE
  11. LEVETRIRACETAM [Concomitant]
  12. ONDANSETRON [Concomitant]
     Active Substance: ONDANSETRON

REACTIONS (10)
  - Hypoalbuminaemia [None]
  - Proteinuria [None]
  - Hypocalcaemia [None]
  - Hypokalaemia [None]
  - Gallbladder enlargement [None]
  - Obstructive pancreatitis [None]
  - Haematuria [None]
  - Therapy cessation [None]
  - Cholecystitis [None]
  - Ileus [None]

NARRATIVE: CASE EVENT DATE: 20190901
